FAERS Safety Report 16972627 (Version 1)
Quarter: 2019Q4

REPORT INFORMATION
  Report Type: Spontaneous
  Country: IN (occurrence: IN)
  Receive Date: 20191030
  Receipt Date: 20191030
  Transmission Date: 20200122
  Serious: Yes (Other)
  Sender: FDA-Public Use
  Company Number: IN-LUPIN LIMITED-2019-06425

PATIENT
  Age: 50 Year
  Sex: Male

DRUGS (4)
  1. BLONANSERIN [Concomitant]
     Active Substance: BLONANSERIN
     Indication: SCHIZOPHRENIA
     Dosage: 8 MILLIGRAM IN DIVIDED DOSES
     Route: 065
  2. LURASIDONE [Suspect]
     Active Substance: LURASIDONE
     Indication: SCHIZOPHRENIA
     Dosage: 40 MILLIGRAM, QD
     Route: 065
  3. LURASIDONE [Suspect]
     Active Substance: LURASIDONE
     Dosage: 80 MILLIGRAM, QD
     Route: 065
  4. LURASIDONE [Suspect]
     Active Substance: LURASIDONE
     Dosage: UNK, DOSE REDUCED
     Route: 065

REACTIONS (1)
  - Anaemia [Recovering/Resolving]
